FAERS Safety Report 8621782-9 (Version None)
Quarter: 2012Q3

REPORT INFORMATION
  Report Type: 
  Country: None (occurrence: None)
  Receive Date: 20120821
  Receipt Date: 20120821
  Transmission Date: 20120928
  Serious: Yes (Other)
  Sender: FDA-Public Use
  Company Number: None

PATIENT
  Age: 47 Year
  Sex: Male
  Weight: 77.1115 kg

DRUGS (1)
  1. HYDROCORTISONE ACETATE AND PRAMOXINE HCL [Suspect]
     Indication: HAEMORRHOIDS
     Dates: start: 20120817, end: 20120817

REACTIONS (1)
  - RECTAL HAEMORRHAGE [None]
